FAERS Safety Report 9002483 (Version 2)
Quarter: 2013Q1

REPORT INFORMATION
  Report Type: Spontaneous
  Country: FR (occurrence: FR)
  Receive Date: 20130107
  Receipt Date: 20130220
  Transmission Date: 20140127
  Serious: Yes (Hospitalization, Other)
  Sender: FDA-Public Use
  Company Number: FR-PFIZER INC-2013000647

PATIENT
  Age: 52 Year
  Sex: Male

DRUGS (5)
  1. LYRICA [Suspect]
     Dosage: UNK
     Route: 048
     Dates: start: 2009
  2. KEPPRA [Suspect]
     Indication: EPILEPSY
     Dosage: UNK
     Route: 048
     Dates: start: 2009
  3. RANIPLEX [Concomitant]
     Dosage: UNK
     Route: 048
     Dates: start: 20121002
  4. BRICANYL [Concomitant]
     Dosage: UNK
     Route: 048
     Dates: start: 20121002
  5. LOVENOX [Concomitant]
     Dosage: UNK
     Dates: start: 20121002

REACTIONS (5)
  - Drug reaction with eosinophilia and systemic symptoms [Recovering/Resolving]
  - Convulsion [Recovering/Resolving]
  - Confusional state [Recovering/Resolving]
  - Urinary incontinence [Recovering/Resolving]
  - Vomiting [Recovering/Resolving]
